FAERS Safety Report 8399509-8 (Version None)
Quarter: 2012Q2

REPORT INFORMATION
  Report Type: 
  Country: None (occurrence: None)
  Receive Date: 20120323
  Receipt Date: 20110718
  Transmission Date: 20120825
  Serious: Yes (Other)
  Sender: FDA-Public Use
  Company Number: 163-21880-11072189

PATIENT
  Age: 75 Year
  Sex: Female

DRUGS (13)
  1. REVLIMID [Suspect]
     Indication: MULTIPLE MYELOMA
     Dosage: 10 MG, 1 IN 1 D, PO 5 MG, 1 IN 1 D, PO 15 MG, 1 IN 1 D, PO
     Route: 048
     Dates: start: 20110418
  2. REVLIMID [Suspect]
     Indication: MULTIPLE MYELOMA
     Dosage: 10 MG, 1 IN 1 D, PO 5 MG, 1 IN 1 D, PO 15 MG, 1 IN 1 D, PO
     Route: 048
     Dates: start: 20110701
  3. REVLIMID [Suspect]
     Indication: MULTIPLE MYELOMA
     Dosage: 10 MG, 1 IN 1 D, PO 5 MG, 1 IN 1 D, PO 15 MG, 1 IN 1 D, PO
     Route: 048
     Dates: start: 20110601
  4. ASPIRIN [Concomitant]
  5. CRESTOR (ROSUVASTATIN) (UNKNOWN) [Concomitant]
  6. VITAMIN D (ERGOCALCIFEROL) (UNKNOWN) [Concomitant]
  7. IMDUR (ISOSORBIDE MONONITRATE) (UNKNOWN) [Concomitant]
  8. REQUIP (ROPINIROLE HYDROCHLORIDE) (UNKNOWN) [Concomitant]
  9. CALCIUM (CALCIUM) (UNKNOWN) [Concomitant]
  10. TOPROL (METOPROLOL SUCCINATE) (UNKNOWN) [Concomitant]
  11. NEXIUM [Concomitant]
  12. POTASSIUM (POTASSIUM) (UNKNOWN) [Concomitant]
  13. PRADAX (DABIGATRAN ETEXILATE MESILATE) (UNKNOWN) [Concomitant]

REACTIONS (1)
  - HAEMOGLOBIN DECREASED [None]
